FAERS Safety Report 8905835 (Version 3)
Quarter: 2014Q2

REPORT INFORMATION
  Report Type: Spontaneous
  Country: US (occurrence: US)
  Receive Date: 20121113
  Receipt Date: 20131018
  Transmission Date: 20141212
  Serious: Yes (Other)
  Sender: FDA-Public Use
  Company Number: US-PFIZER INC-2012283221

PATIENT
  Sex: 0

DRUGS (1)
  1. DILANTIN [Suspect]
     Dosage: 300 MG, 2X/DAY

REACTIONS (1)
  - Epilepsy [Unknown]
